FAERS Safety Report 25045646 (Version 2)
Quarter: 2025Q1

REPORT INFORMATION
  Report Type: Spontaneous
  Country: GB (occurrence: GB)
  Receive Date: 20250306
  Receipt Date: 20250321
  Transmission Date: 20250408
  Serious: Yes (Death, Other)
  Sender: MYLAN
  Company Number: GB-MYLANLABS-2025M1019598

PATIENT
  Age: 37 Year
  Sex: Male

DRUGS (5)
  1. CLOZAPINE [Suspect]
     Active Substance: CLOZAPINE
     Indication: Schizophrenia
  2. AMISULPRIDE [Concomitant]
     Active Substance: AMISULPRIDE
     Dosage: UNK, BID (100 MG MORNING, 150 MG EVENING)
  3. PREGABALIN [Concomitant]
     Active Substance: PREGABALIN
     Dosage: 300 MILLIGRAM, BID
  4. TRIHEXYPHENIDYL [Concomitant]
     Active Substance: TRIHEXYPHENIDYL
     Dosage: 1 MILLIGRAM, BID
  5. SENNA [Concomitant]
     Active Substance: SENNOSIDES
     Dosage: 15 MILLILITER, QD (DAILY)

REACTIONS (5)
  - Death [Fatal]
  - Circulatory collapse [Unknown]
  - Respiratory symptom [Unknown]
  - Infection [Unknown]
  - Pyrexia [Unknown]

NARRATIVE: CASE EVENT DATE: 20250224
